FAERS Safety Report 4324855-4 (Version None)
Quarter: 2004Q1

REPORT INFORMATION
  Report Type: 
  Country: None (occurrence: None)
  Receive Date: 20040323
  Receipt Date: 20040310
  Transmission Date: 20041129
  Serious: Yes (Hospitalization, Other)
  Sender: FDA-Public Use
  Company Number: 2003121737

PATIENT
  Age: 64 Year
  Sex: Female
  Weight: 53 kg

DRUGS (9)
  1. NEURONTIN [Suspect]
     Indication: NEUROPATHIC PAIN
     Dosage: 300 MG (DAILY), ORAL
     Route: 048
     Dates: start: 20021029, end: 20031125
  2. CLOMIPRAMINE HCL [Concomitant]
  3. OXYBUTYNIN [Concomitant]
  4. BACLOFEN [Concomitant]
  5. ACETYLSALICYLIC ACID SRT [Concomitant]
  6. LORMETAZEPAM (LORMETAZEPAM) [Concomitant]
  7. NULYTELY (SODIUM BICARBONATE, POTASSIUM CHLORIDE, SODIUM CHLORIDE, MAC [Concomitant]
  8. RISEDRONATE SODIUM (RISEDRONATE SODIUM) [Concomitant]
  9. TRAMADOL HCL [Concomitant]

REACTIONS (6)
  - CAROTID ARTERY DISEASE [None]
  - EPILEPSY [None]
  - HAEMATOCRIT DECREASED [None]
  - HAEMOGLOBIN DECREASED [None]
  - RED BLOOD CELL COUNT DECREASED [None]
  - SOMNOLENCE [None]
